FAERS Safety Report 9363112 (Version 1)
Quarter: 2013Q2

REPORT INFORMATION
  Report Type: Spontaneous
  Country: US (occurrence: None)
  Receive Date: 20130619
  Receipt Date: 20130619
  Transmission Date: 20140414
  Serious: Yes (Death)
  Sender: FDA-Public Use
  Company Number: TPG2013A00652

PATIENT
  Age: 60 Year
  Sex: Male

DRUGS (1)
  1. EDARBI [Suspect]
     Indication: ESSENTIAL HYPERTENSION
     Route: 048
     Dates: start: 201210, end: 20121210

REACTIONS (1)
  - Death [None]
